FAERS Safety Report 7173667-5 (Version None)
Quarter: 2010Q4

REPORT INFORMATION
  Report Type: 
  Country: None (occurrence: None)
  Receive Date: 20101219
  Receipt Date: 20100308
  Transmission Date: 20110411
  Serious: No
  Sender: FDA-Public Use
  Company Number: US-AMGEN-KDL394882

PATIENT

DRUGS (14)
  1. ENBREL [Suspect]
     Indication: RHEUMATOID ARTHRITIS
     Dosage: 50 MG, QWK
     Route: 058
     Dates: start: 20090513
  2. METHOTREXATE [Concomitant]
     Dosage: 20 MG, QWK
     Route: 048
     Dates: start: 20090301
  3. LISINOPRIL [Concomitant]
     Dosage: UNK UNK, UNK
  4. ETODOLAC [Concomitant]
  5. FOLIC ACID [Concomitant]
  6. PREDNISONE [Concomitant]
  7. VALSARTAN/HYDROCHLOROTHIAZIDE [Concomitant]
  8. BUMETANIDE [Concomitant]
  9. BISOPROLOL [Concomitant]
  10. ESTROGENS CONJUGATED [Concomitant]
  11. DULOXETIME HYDROCHLORIDE [Concomitant]
  12. LEVOTHYROXINE SODIUM [Concomitant]
  13. ESZOPICLONE [Concomitant]
  14. METAXALONE [Concomitant]

REACTIONS (7)
  - ANKLE FRACTURE [None]
  - COUGH [None]
  - FALL [None]
  - INTERVERTEBRAL DISC PROTRUSION [None]
  - ONYCHOMADESIS [None]
  - TENDON RUPTURE [None]
  - THERAPEUTIC RESPONSE DECREASED [None]
